FAERS Safety Report 9317729 (Version 1)
Quarter: 2013Q2

REPORT INFORMATION
  Report Type: Spontaneous
  Country: US (occurrence: US)
  Receive Date: 20130530
  Receipt Date: 20130530
  Transmission Date: 20140414
  Serious: No
  Sender: FDA-Public Use
  Company Number: US-GLAXOSMITHKLINE-A0979106A

PATIENT
  Age: 68 Year
  Sex: Male

DRUGS (2)
  1. VENTOLIN [Suspect]
     Indication: CHRONIC OBSTRUCTIVE PULMONARY DISEASE
     Dosage: 2PUFF FOUR TIMES PER DAY
     Route: 055
     Dates: start: 20120202
  2. BETAMETHASONE VALERATE [Concomitant]

REACTIONS (2)
  - Drug ineffective [Recovering/Resolving]
  - Dyspnoea [Recovering/Resolving]
